FAERS Safety Report 8493888-9 (Version None)
Quarter: 2012Q3

REPORT INFORMATION
  Report Type: 
  Country: None (occurrence: None)
  Receive Date: 20120707
  Receipt Date: 20120705
  Transmission Date: 20120928
  Serious: Yes (Other)
  Sender: FDA-Public Use
  Company Number: US-TEVA-346886USA

PATIENT
  Sex: Female
  Weight: 50.848 kg

DRUGS (3)
  1. PLAN B ONE-STEP [Suspect]
     Indication: POST COITAL CONTRACEPTION
     Dosage: 1.5 MILLIGRAM;
     Route: 048
     Dates: start: 20120704, end: 20120704
  2. MELATONIN [Suspect]
     Indication: INSOMNIA
  3. ACETAMINOPHEN [Suspect]
     Indication: HEADACHE
     Dates: start: 20120704, end: 20120704

REACTIONS (2)
  - AMNESIA [None]
  - HEADACHE [None]
